FAERS Safety Report 8222341-2 (Version None)
Quarter: 2012Q1

REPORT INFORMATION
  Report Type: 
  Country: None (occurrence: None)
  Receive Date: 20120316
  Receipt Date: 20110418
  Transmission Date: 20120608
  Serious: Yes (Death, Other)
  Sender: FDA-Public Use
  Company Number: DE-022521

PATIENT
  Age: 62 Year
  Sex: Female
  Weight: 76 kg

DRUGS (6)
  1. LEVOTHYROXINE SODIUM [Concomitant]
  2. LEVOTHYROXINE SODIUM [Concomitant]
  3. (CHLORAMBUCIL) [Suspect]
     Indication: CHRONIC LYMPHOCYTIC LEUKAEMIA
     Dosage: 10 MG/M2 ORAL
     Route: 048
     Dates: end: 20110405
  4. OFATUMUMAB (OFATUMUMAB) [Suspect]
     Indication: CHRONIC LYMPHOCYTIC LEUKAEMIA
     Dosage: INTRAVENOUS (NOT OTHERWISE SPECIFIED)
     Route: 042
     Dates: start: 20110405
  5. DOXEPIN HCL [Concomitant]
  6. SIMVASTATIN [Concomitant]

REACTIONS (7)
  - CHRONIC OBSTRUCTIVE PULMONARY DISEASE [None]
  - VOMITING [None]
  - GASTROINTESTINAL INFECTION [None]
  - NAUSEA [None]
  - RIGHT VENTRICULAR FAILURE [None]
  - OLIGURIA [None]
  - BRONCHITIS CHRONIC [None]
